FAERS Safety Report 11139329 (Version 2)
Quarter: 2015Q2

REPORT INFORMATION
  Report Type: Spontaneous
  Country: FR (occurrence: None)
  Receive Date: 20150522
  Receipt Date: 20150605
  Transmission Date: 20150821
  Serious: No
  Sender: FDA-Public Use
  Company Number: FR2015GSK054104

PATIENT
  Age: 64 Year
  Sex: Male

DRUGS (7)
  1. KIVEXA (ABACAVIR + LAMIVUDINE) [Concomitant]
  2. APROVEL (IRBESARTAN) [Concomitant]
  3. KARDEGIC [Concomitant]
     Active Substance: ASPIRIN LYSINE
  4. ATHYMIL (MIANSERIN HYDROCHLORIDE) [Concomitant]
  5. TIVICAY [Suspect]
     Active Substance: DOLUTEGRAVIR SODIUM
     Indication: HIV INFECTION
     Dosage: 1 UNK, 1D, ORAL
     Route: 048
     Dates: start: 20150413, end: 20150416
  6. CRESTOR [Concomitant]
     Active Substance: ROSUVASTATIN CALCIUM
  7. SUSTIVA [Concomitant]
     Active Substance: EFAVIRENZ

REACTIONS (11)
  - Malaise [None]
  - Paraesthesia [None]
  - Nausea [None]
  - Pruritus [None]
  - Headache [None]
  - Dizziness [None]
  - Poor quality sleep [None]
  - Discomfort [None]
  - Myalgia [None]
  - Fatigue [None]
  - Arthralgia [None]

NARRATIVE: CASE EVENT DATE: 20150414
